FAERS Safety Report 20089997 (Version 1)
Quarter: 2021Q4

REPORT INFORMATION
  Report Type: Spontaneous
  Country: US (occurrence: None)
  Receive Date: 20211118
  Receipt Date: 20211118
  Transmission Date: 20220303
  Serious: Yes (Hospitalization)
  Sender: FDA-Public Use
  Company Number: None

PATIENT
  Age: 9 Month
  Sex: Male

DRUGS (1)
  1. SILDENAFIL FOR ORAL SUSPENSION [Suspect]
     Active Substance: SILDENAFIL CITRATE
     Indication: Pulmonary hypertension
     Dosage: FREQUENCY : EVERY 8 HOURS;?
     Route: 048
     Dates: start: 202109

REACTIONS (1)
  - Respiratory syncytial virus test negative [None]

NARRATIVE: CASE EVENT DATE: 20211116
